FAERS Safety Report 4530143-3 (Version None)
Quarter: 2004Q4

REPORT INFORMATION
  Report Type: 
  Country: None (occurrence: None)
  Receive Date: 20041214
  Receipt Date: 20041220
  Transmission Date: 20050328
  Serious: Yes (Hospitalization, Other)
  Sender: FDA-Public Use
  Company Number: 2004090355

PATIENT
  Age: 30 Year
  Sex: Female
  Weight: 61.2356 kg

DRUGS (5)
  1. BENADRYL [Suspect]
     Indication: HYPERSENSITIVITY
     Dates: start: 20041031, end: 20041101
  2. BENADRYL [Suspect]
     Indication: HYPERSENSITIVITY
     Dates: start: 20041029, end: 20041031
  3. BENADRYL ALLERGY/SINUS  (DIPHENHYDRAMINE, PSEUDOEPHEDRINE) [Suspect]
     Indication: HYPERSENSITIVITY
     Dosage: 4 IN 1 D
     Dates: start: 20041028, end: 20041101
  4. SOLU-MEDROL [Suspect]
     Indication: HYPERSENSITIVITY
     Dates: start: 20041030
  5. TRAZODONE (TRAZODONE) [Concomitant]

REACTIONS (22)
  - ANAPHYLACTIC SHOCK [None]
  - ANXIETY [None]
  - ARTHRALGIA [None]
  - ASTHMA [None]
  - BLOOD POTASSIUM DECREASED [None]
  - CHOLELITHIASIS [None]
  - DIZZINESS [None]
  - DRUG SCREEN POSITIVE [None]
  - DYSPHAGIA [None]
  - DYSPNOEA [None]
  - EYE PRURITUS [None]
  - EYE SWELLING [None]
  - GASTRITIS [None]
  - HAEMATEMESIS [None]
  - HEADACHE [None]
  - HEART RATE INCREASED [None]
  - HYPERSENSITIVITY [None]
  - NAUSEA [None]
  - OEDEMA PERIPHERAL [None]
  - STOMACH DISCOMFORT [None]
  - ULCER [None]
  - WHITE BLOOD CELL COUNT INCREASED [None]
